FAERS Safety Report 8571289-2 (Version None)
Quarter: 2012Q3

REPORT INFORMATION
  Report Type: 
  Country: None (occurrence: None)
  Receive Date: 20120806
  Receipt Date: 20120731
  Transmission Date: 20120928
  Serious: No
  Sender: FDA-Public Use
  Company Number: US-PFIZER INC-2012146065

PATIENT
  Age: 46 Year
  Sex: Male

DRUGS (1)
  1. ZYVOX [Suspect]
     Indication: STAPHYLOCOCCAL INFECTION
     Dosage: 600 MG, 1X/DAY
     Dates: start: 20111201

REACTIONS (7)
  - FEELING ABNORMAL [None]
  - VISUAL IMPAIRMENT [None]
  - DIZZINESS [None]
  - ANXIETY [None]
  - MALAISE [None]
  - NAUSEA [None]
  - VISION BLURRED [None]
